FAERS Safety Report 9121269 (Version 2)
Quarter: 2013Q2

REPORT INFORMATION
  Report Type: Spontaneous
  Country: US (occurrence: US)
  Receive Date: 20130225
  Receipt Date: 20130415
  Transmission Date: 20140414
  Serious: No
  Sender: FDA-Public Use
  Company Number: US-RB-050232-13

PATIENT
  Age: 22 Year
  Sex: Male

DRUGS (2)
  1. MUCINEX DM MAXIMUM STRENGTH [Suspect]
     Indication: PRODUCT USED FOR UNKNOWN INDICATION
     Route: 048
     Dates: start: 20130211
  2. NYQUIL [Suspect]
     Indication: SLEEP DISORDER
     Dosage: HALF DOSE

REACTIONS (1)
  - Faeces discoloured [Unknown]
